FAERS Safety Report 6371054-0 (Version None)
Quarter: 2009Q3

REPORT INFORMATION
  Report Type: 
  Country: None (occurrence: None)
  Receive Date: 20090923
  Receipt Date: 20090911
  Transmission Date: 20100115
  Serious: Yes (Hospitalization)
  Sender: FDA-Public Use
  Company Number: JP-PFIZER INC-2009270461

PATIENT
  Age: 17 Year

DRUGS (3)
  1. BANAN [Suspect]
     Indication: PHARYNGITIS
     Dosage: UNK
     Route: 048
     Dates: start: 20090906, end: 20090910
  2. VOLTAREN [Concomitant]
     Route: 065
  3. GASTER [Concomitant]
     Route: 065

REACTIONS (1)
  - DRUG ERUPTION [None]
